FAERS Safety Report 15644149 (Version 2)
Quarter: 2018Q4

REPORT INFORMATION
  Report Type: Spontaneous
  Country: IT (occurrence: IT)
  Receive Date: 20181121
  Receipt Date: 20181126
  Transmission Date: 20190205
  Serious: Yes (Hospitalization)
  Sender: FDA-Public Use
  Company Number: IT-JNJFOC-20181125907

PATIENT
  Age: 12 Month
  Sex: Male
  Weight: 11 kg

DRUGS (3)
  1. NITRAZEPAM [Concomitant]
     Active Substance: NITRAZEPAM
     Route: 048
  2. TOPIRAMATE. [Suspect]
     Active Substance: TOPIRAMATE
     Indication: INFANTILE SPASMS
     Route: 048
     Dates: start: 201809
  3. VIGABATRIN. [Concomitant]
     Active Substance: VIGABATRIN
     Indication: INFANTILE SPASMS
     Route: 048

REACTIONS (6)
  - Relapsing fever [Recovering/Resolving]
  - Off label use [Unknown]
  - Psychomotor retardation [Recovering/Resolving]
  - Neutropenia [Recovering/Resolving]
  - Product use issue [Unknown]
  - Infantile spasms [Recovering/Resolving]

NARRATIVE: CASE EVENT DATE: 20180917
